FAERS Safety Report 21102471 (Version 2)
Quarter: 2022Q3

REPORT INFORMATION
  Report Type: Report from Study
  Country: BR (occurrence: BR)
  Receive Date: 20220719
  Receipt Date: 20220803
  Transmission Date: 20221027
  Serious: Yes (Death, Hospitalization)
  Sender: FDA-Public Use
  Company Number: BR-BIOGEN-2022BI01139473

PATIENT
  Age: 22 Year
  Sex: Male
  Weight: 55 kg

DRUGS (7)
  1. AVONEX PEN [Suspect]
     Active Substance: INTERFERON BETA-1A
     Indication: Multiple sclerosis
     Route: 050
     Dates: start: 20191227, end: 202112
  2. AVONEX PEN [Suspect]
     Active Substance: INTERFERON BETA-1A
  3. AVONEX PEN [Suspect]
     Active Substance: INTERFERON BETA-1A
  4. AVONEX PEN [Suspect]
     Active Substance: INTERFERON BETA-1A
  5. AZITHROMYCIN [Concomitant]
     Active Substance: AZITHROMYCIN
     Indication: Cystic fibrosis
     Route: 050
     Dates: start: 2017, end: 20220126
  6. PULMOZYME [Concomitant]
     Active Substance: DORNASE ALFA
     Indication: Lung disorder
     Route: 050
     Dates: end: 20220126
  7. URSODIOL [Concomitant]
     Active Substance: URSODIOL
     Indication: Liver injury
     Route: 050
     Dates: start: 2012, end: 20220126

REACTIONS (2)
  - Cardiopulmonary failure [Fatal]
  - Oxygen saturation decreased [Fatal]

NARRATIVE: CASE EVENT DATE: 20210414
